FAERS Safety Report 5760702-1 (Version None)
Quarter: 2008Q2

REPORT INFORMATION
  Report Type: 
  Country: None (occurrence: None)
  Receive Date: 20080606
  Receipt Date: 20071211
  Transmission Date: 20081010
  Serious: No
  Sender: FDA-Public Use
  Company Number: US-BAYER-200716738NA

PATIENT
  Age: 30 Year
  Sex: Female
  Weight: 94 kg

DRUGS (1)
  1. MIRENA [Suspect]
     Indication: CONTRACEPTION
     Route: 015
     Dates: start: 20060101, end: 20071203

REACTIONS (10)
  - BACK PAIN [None]
  - BREAST PAIN [None]
  - DEPRESSION [None]
  - FATIGUE [None]
  - HUNGER [None]
  - MENORRHAGIA [None]
  - MENSTRUAL DISORDER [None]
  - MOOD SWINGS [None]
  - NAUSEA [None]
  - UTERINE CONTRACTIONS ABNORMAL [None]
